FAERS Safety Report 25222598 (Version 3)
Quarter: 2025Q3

REPORT INFORMATION
  Report Type: Report from Study
  Country: CA (occurrence: CA)
  Receive Date: 20250421
  Receipt Date: 20250730
  Transmission Date: 20251021
  Serious: Yes (Other)
  Sender: JOHNSON AND JOHNSON
  Company Number: CA-JNJFOC-20250422096

PATIENT
  Age: 77 Year
  Sex: Male
  Weight: 165 kg

DRUGS (1)
  1. SIMPONI [Suspect]
     Active Substance: GOLIMUMAB
     Indication: Product used for unknown indication
     Dosage: MOST RECENT DOSE :22-JUL-2025
     Route: 041

REACTIONS (4)
  - Nephrolithiasis [Not Recovered/Not Resolved]
  - Surgery [Unknown]
  - Herpes zoster [Recovering/Resolving]
  - Cystitis [Recovering/Resolving]

NARRATIVE: CASE EVENT DATE: 20250628
